FAERS Safety Report 5432120-7 (Version None)
Quarter: 2007Q3

REPORT INFORMATION
  Report Type: 
  Country: None (occurrence: None)
  Receive Date: 20070830
  Receipt Date: 20070820
  Transmission Date: 20080115
  Serious: Yes (Other)
  Sender: FDA-Public Use
  Company Number: JP-PFIZER INC-2007069895

PATIENT
  Age: 69 Year
  Sex: Female

DRUGS (1)
  1. NORVASC [Suspect]
     Dosage: DAILY DOSE:5MG
     Route: 048

REACTIONS (1)
  - BLOOD GLUCOSE DECREASED [None]
